FAERS Safety Report 9729458 (Version 3)
Quarter: 2015Q3

REPORT INFORMATION
  Report Type: Spontaneous
  Country: US (occurrence: US)
  Receive Date: 20131204
  Receipt Date: 20150804
  Transmission Date: 20151125
  Serious: No
  Sender: FDA-Public Use
  Company Number: US-GILEAD-2009-0021196

PATIENT
  Age: 70 Year
  Sex: Female

DRUGS (6)
  1. CIALIS [Concomitant]
     Active Substance: TADALAFIL
  2. LASIX [Concomitant]
     Active Substance: FUROSEMIDE
  3. LETAIRIS [Suspect]
     Active Substance: AMBRISENTAN
     Indication: PULMONARY ARTERIAL HYPERTENSION
     Dates: start: 20090323
  4. ENALAPRIL [Concomitant]
     Active Substance: ENALAPRIL
  5. DIGOXIN. [Concomitant]
     Active Substance: DIGOXIN
  6. KCL [Concomitant]
     Active Substance: POTASSIUM CHLORIDE

REACTIONS (3)
  - Vision blurred [Unknown]
  - Tinnitus [Unknown]
  - Dizziness [Unknown]
